FAERS Safety Report 7403075-0 (Version None)
Quarter: 2011Q1

REPORT INFORMATION
  Report Type: 
  Country: None (occurrence: None)
  Receive Date: 20110311
  Receipt Date: 20110303
  Transmission Date: 20110831
  Serious: Yes (Disabling)
  Sender: FDA-Public Use
  Company Number: WSDF-00763

PATIENT
  Age: 51 Year
  Sex: Female

DRUGS (2)
  1. WINRHO SDF LIQUID [Suspect]
     Indication: IDIOPATHIC THROMBOCYTOPENIC PURPURA
     Dosage: (4050 UG INTRAVENOUS (NOT OTHERWISE SPECIFIED)
     Route: 042
     Dates: start: 20081002, end: 20081002
  2. WINRHO SDF LIQUID [Suspect]
     Dosage: (2700 UG INTRAVENOUS (NOT OTHERWISE SPECIFIED)
     Route: 042
     Dates: start: 20081031, end: 20081031

REACTIONS (4)
  - PAIN IN EXTREMITY [None]
  - PAIN [None]
  - ASTHENIA [None]
  - ABASIA [None]
